FAERS Safety Report 23555111 (Version 1)
Quarter: 2024Q1

REPORT INFORMATION
  Report Type: Spontaneous
  Country: US (occurrence: US)
  Receive Date: 20240222
  Receipt Date: 20240222
  Transmission Date: 20240409
  Serious: No
  Sender: FDA-Public Use
  Company Number: US-LANTHEUS-LMI-2023-00444

PATIENT
  Age: 78 Year
  Sex: Male
  Weight: 111 kg

DRUGS (2)
  1. DEFINITY [Suspect]
     Active Substance: PERFLUTREN
     Indication: Echocardiogram
     Dosage: 3.5 MILLILITRE (1 VIAL OF DEFINITY PREPARED IN 8.5 ML NORMAL SALINE)
     Route: 042
     Dates: start: 20230407, end: 20230407
  2. XARELTO [Concomitant]
     Active Substance: RIVAROXABAN
     Indication: Transient ischaemic attack
     Dosage: 20 MILLIGRAM
     Route: 048

REACTIONS (3)
  - Gait disturbance [Unknown]
  - Vision blurred [Unknown]
  - Dizziness [Unknown]

NARRATIVE: CASE EVENT DATE: 20230407
